FAERS Safety Report 20839557 (Version 1)
Quarter: 2022Q2

REPORT INFORMATION
  Report Type: Spontaneous
  Country: FR (occurrence: FR)
  Receive Date: 20220517
  Receipt Date: 20220517
  Transmission Date: 20220720
  Serious: Yes (Other)
  Sender: FDA-Public Use
  Company Number: None

PATIENT
  Age: 56 Year
  Sex: Female
  Weight: 73 kg

DRUGS (6)
  1. TEMOZOLOMIDE [Suspect]
     Active Substance: TEMOZOLOMIDE
     Indication: Anaplastic astrocytoma
     Dosage: 140 MILLIGRAM, QD
     Route: 048
     Dates: start: 20211227, end: 20220206
  2. PREDNISOLONE [Suspect]
     Active Substance: PREDNISOLONE
     Indication: Astrocytoma
     Dosage: 40 MILLIGRAM, QD
     Route: 048
     Dates: start: 20211227, end: 20220222
  3. Transipeg [Concomitant]
     Indication: Constipation
     Dosage: UNK
     Route: 048
  4. LEVETIRACETAM [Concomitant]
     Active Substance: LEVETIRACETAM
     Indication: Epilepsy
     Dosage: 1500 MILLIGRAM, QD
     Route: 048
  5. METHIMAZOLE [Concomitant]
     Active Substance: METHIMAZOLE
     Indication: Hyperthyroidism
     Dosage: 20 MILLIGRAM, QD
     Route: 048
  6. LEVOTHYROXINE [Concomitant]
     Active Substance: LEVOTHYROXINE
     Indication: Hyperthyroidism
     Dosage: 50 MICROGRAM, QD
     Route: 048

REACTIONS (1)
  - Rhegmatogenous retinal detachment [Recovered/Resolved with Sequelae]

NARRATIVE: CASE EVENT DATE: 20220202
